FAERS Safety Report 7830836-6 (Version None)
Quarter: 2011Q4

REPORT INFORMATION
  Report Type: 
  Country: None (occurrence: None)
  Receive Date: 20111021
  Receipt Date: 20111014
  Transmission Date: 20120403
  Serious: Yes (Other)
  Sender: FDA-Public Use
  Company Number: JP-UCBSA-043445

PATIENT
  Age: 16 Year
  Sex: Male

DRUGS (3)
  1. KEPPRA [Suspect]
     Indication: EPILEPSY
     Route: 048
     Dates: start: 20110909, end: 20110930
  2. PHENYTOIN SODIUM CAP [Concomitant]
  3. ZONISAMIDE [Concomitant]
     Route: 048

REACTIONS (3)
  - HYPERKINESIA [None]
  - MOOD ALTERED [None]
  - GASTROINTESTINAL DISORDER [None]
